FAERS Safety Report 5075509-0 (Version None)
Quarter: 2006Q3

REPORT INFORMATION
  Report Type: 
  Country: None (occurrence: None)
  Receive Date: 20060809
  Receipt Date: 20041206
  Transmission Date: 20061208
  Serious: Yes (Hospitalization)
  Sender: FDA-Public Use
  Company Number: CH-ROCHE-388224

PATIENT
  Age: 56 Year
  Sex: Female

DRUGS (8)
  1. BONIVA [Suspect]
     Route: 042
     Dates: start: 20040512
  2. FEMARA [Concomitant]
     Route: 048
  3. STILNOX [Concomitant]
     Route: 048
     Dates: start: 20040505
  4. PONSTAN [Concomitant]
     Route: 048
     Dates: start: 20040615
  5. UNKNOWN DRUG [Concomitant]
     Dosage: DRUG REPORTED AS DEROXADE.
     Route: 048
     Dates: start: 20040505
  6. UNKNOWN DRUG [Concomitant]
     Route: 048
     Dates: start: 20040609
  7. ZOLEDRONIC ACID [Suspect]
     Indication: DRUG USE FOR UNKNOWN INDICATION
     Route: 065
     Dates: start: 20030615
  8. PAMIDRONIC ACID [Suspect]
     Indication: DRUG USE FOR UNKNOWN INDICATION
     Route: 065
     Dates: start: 20030515

REACTIONS (1)
  - OSTEONECROSIS [None]
